FAERS Safety Report 25103298 (Version 5)
Quarter: 2025Q2

REPORT INFORMATION
  Report Type: Report from Study
  Country: US (occurrence: US)
  Receive Date: 20250321
  Receipt Date: 20250422
  Transmission Date: 20250716
  Serious: Yes (Death, Hospitalization, Other)
  Sender: UNITED THERAPEUTICS
  Company Number: US-UNITED THERAPEUTICS-UNT-2025-008740

PATIENT
  Age: 75 Year
  Sex: Male

DRUGS (3)
  1. TREPROSTINIL SODIUM [Suspect]
     Active Substance: TREPROSTINIL SODIUM
     Indication: Pulmonary arterial hypertension
     Dosage: 24 ?G, QID
     Dates: start: 20250307, end: 20250308
  2. TREPROSTINIL SODIUM [Suspect]
     Active Substance: TREPROSTINIL SODIUM
  3. OXYGEN [Concomitant]
     Active Substance: OXYGEN
     Indication: Dizziness

REACTIONS (12)
  - General physical health deterioration [Fatal]
  - Loss of consciousness [Recovered/Resolved]
  - Head injury [Unknown]
  - Contusion [Unknown]
  - Skin exfoliation [Unknown]
  - Pulmonary arterial hypertension [Unknown]
  - Myocardial necrosis marker increased [Unknown]
  - Fall [Recovered/Resolved with Sequelae]
  - Dizziness [Recovered/Resolved]
  - Cough [Unknown]
  - Vertigo [Unknown]
  - Presyncope [Unknown]

NARRATIVE: CASE EVENT DATE: 20250301
